FAERS Safety Report 4448530-0 (Version None)
Quarter: 2004Q3

REPORT INFORMATION
  Report Type: 
  Country: None (occurrence: None)
  Receive Date: 20040909
  Receipt Date: 20040825
  Transmission Date: 20050211
  Serious: Yes (Other)
  Sender: FDA-Public Use
  Company Number: FR_040804652

PATIENT
  Age: 72 Year
  Sex: Female

DRUGS (7)
  1. PROZAC [Suspect]
     Indication: TOBACCO WITHDRAWAL SYMPTOMS
     Dosage: 20 MG/1 DAY
     Dates: start: 20040505
  2. SINGULAIR (MONTELUKAST) [Concomitant]
  3. SYMBICORT [Concomitant]
  4. ISOPTIN [Concomitant]
  5. LASIX [Concomitant]
  6. ZOCOR [Concomitant]
  7. OXYGEN [Concomitant]

REACTIONS (3)
  - CHRONIC OBSTRUCTIVE AIRWAYS DISEASE EXACERBATED [None]
  - HYPERCAPNIA [None]
  - PO2 DECREASED [None]
